FAERS Safety Report 22062106 (Version 2)
Quarter: 2023Q1

REPORT INFORMATION
  Report Type: Spontaneous
  Country: GB (occurrence: GB)
  Receive Date: 20230304
  Receipt Date: 20230313
  Transmission Date: 20230417
  Serious: Yes (Disabling, Other)
  Sender: FDA-Public Use
  Company Number: GB-MHRA-MED-202302202342384370-MCZVQ

PATIENT
  Sex: Female

DRUGS (6)
  1. CIPROFLOXACIN [Suspect]
     Active Substance: CIPROFLOXACIN
     Indication: Urinary tract infection
  2. OMEPRAZOLE [Concomitant]
     Active Substance: OMEPRAZOLE
     Indication: Hiatus hernia
  3. CLOBETASOL [Concomitant]
     Active Substance: CLOBETASOL
     Indication: Dyshidrotic eczema
  4. BECLOMETHASONE\FORMOTEROL [Concomitant]
     Active Substance: BECLOMETHASONE\FORMOTEROL
     Indication: Asthma
  5. LEVOTHYROXINE [Concomitant]
     Active Substance: LEVOTHYROXINE
     Indication: Hypothyroidism
  6. PREDNISOLONE [Concomitant]
     Active Substance: PREDNISOLONE
     Indication: Dyshidrotic eczema

REACTIONS (10)
  - Balance disorder [Unknown]
  - Osteoporosis [Unknown]
  - Tendon injury [Recovering/Resolving]
  - Tinnitus [Not Recovered/Not Resolved]
  - Headache [Unknown]
  - Nausea [Unknown]
  - Asthenia [Unknown]
  - Tendon pain [Unknown]
  - Paraesthesia [Unknown]
  - Medication error [Unknown]

NARRATIVE: CASE EVENT DATE: 20210926
